FAERS Safety Report 11751618 (Version 1)
Quarter: 2015Q4

REPORT INFORMATION
  Report Type: Spontaneous
  Country: US (occurrence: US)
  Receive Date: 20151118
  Receipt Date: 20151118
  Transmission Date: 20160304
  Serious: Yes (Death, Other)
  Sender: FDA-Public Use
  Company Number: US-TAKEDA-TPA2013A01004

PATIENT

DRUGS (3)
  1. ACTOS [Suspect]
     Active Substance: PIOGLITAZONE HYDROCHLORIDE
     Indication: TYPE 2 DIABETES MELLITUS
     Dosage: 30 MG, UNK
     Route: 048
     Dates: start: 20040610, end: 20080710
  2. METFORMIN [Concomitant]
     Active Substance: METFORMIN HYDROCHLORIDE
     Dosage: 850 MG, UNK
     Dates: start: 20080710
  3. STARLIX [Concomitant]
     Active Substance: NATEGLINIDE
     Dates: start: 20040604

REACTIONS (3)
  - Bladder cancer [Unknown]
  - Death [Fatal]
  - Blood urine present [Unknown]

NARRATIVE: CASE EVENT DATE: 201201
